FAERS Safety Report 15806112 (Version 2)
Quarter: 2019Q2

REPORT INFORMATION
  Report Type: Spontaneous
  Country: US (occurrence: US)
  Receive Date: 20190110
  Receipt Date: 20190412
  Transmission Date: 20190711
  Serious: Yes (Hospitalization)
  Sender: FDA-Public Use
  Company Number: US-PTC THERAPEUTICS, INC.-US-2019PTC000024

PATIENT

DRUGS (4)
  1. CLONIDINE. [Concomitant]
     Active Substance: CLONIDINE
     Indication: PRODUCT USED FOR UNKNOWN INDICATION
     Dosage: 0.05 MG, UNK
     Route: 048
  2. EMFLAZA [Suspect]
     Active Substance: DEFLAZACORT
     Indication: DUCHENNE MUSCULAR DYSTROPHY
     Dosage: 18 MG, UNK
     Route: 048
     Dates: start: 20180730
  3. EMFLAZA [Suspect]
     Active Substance: DEFLAZACORT
     Dosage: 0.75 MG/KG, QD (16 MG Q AM)
     Route: 048
     Dates: start: 20180209
  4. PREDNISONE. [Concomitant]
     Active Substance: PREDNISONE
     Indication: PRODUCT USED FOR UNKNOWN INDICATION
     Dosage: 15 MG, QD
     Route: 048

REACTIONS (6)
  - Incontinence [Unknown]
  - Vomiting [Unknown]
  - Rash maculo-papular [Unknown]
  - Aggression [Unknown]
  - Rhabdomyolysis [Recovered/Resolved]
  - Anger [Unknown]

NARRATIVE: CASE EVENT DATE: 2018
